FAERS Safety Report 24318549 (Version 2)
Quarter: 2024Q4

REPORT INFORMATION
  Report Type: Spontaneous
  Country: IT (occurrence: IT)
  Receive Date: 20240913
  Receipt Date: 20241014
  Transmission Date: 20250114
  Serious: Yes (Hospitalization)
  Sender: ACCORD
  Company Number: IT-MLMSERVICE-20240826-PI172319-00097-1

PATIENT
  Age: 20 Year
  Sex: Male

DRUGS (19)
  1. METHOTREXATE [Suspect]
     Active Substance: METHOTREXATE
     Indication: Still^s disease
     Route: 058
     Dates: start: 202007
  2. ECULIZUMAB [Suspect]
     Active Substance: ECULIZUMAB
     Indication: Thrombotic microangiopathy
     Dates: start: 2022
  3. ANAKINRA [Suspect]
     Active Substance: ANAKINRA
     Indication: Still^s disease
     Route: 042
     Dates: start: 2022, end: 2022
  4. BARICITINIB [Suspect]
     Active Substance: BARICITINIB
     Indication: Still^s disease
     Route: 048
     Dates: start: 202007, end: 202202
  5. CANAKINUMAB [Suspect]
     Active Substance: CANAKINUMAB
     Indication: Haemophagocytic lymphohistiocytosis
     Route: 058
     Dates: start: 2022
  6. PREDNISONE [Suspect]
     Active Substance: PREDNISONE
     Indication: Still^s disease
     Dosage: 5 MG/ DAY, 0,08 MG/KG/DAY, 0.15 MG/KG MILLIGRAM(S)/KILOGRAM
     Route: 048
     Dates: start: 202007
  7. CYCLOSPORINE [Suspect]
     Active Substance: CYCLOSPORINE
     Indication: Haemophagocytic lymphohistiocytosis
     Route: 048
     Dates: start: 2022, end: 2022
  8. METHYLPREDNISOLONE [Suspect]
     Active Substance: METHYLPREDNISOLONE
     Indication: Haemophagocytic lymphohistiocytosis
     Dosage: HIGH-DOSE GLUCOCORTICOIDS FOR 3 CONSECUTIVE DAYS
     Route: 042
     Dates: start: 2022, end: 2022
  9. ENOXAPARIN [Concomitant]
     Active Substance: ENOXAPARIN
     Indication: Prophylaxis
     Dates: start: 202203
  10. RITONAVIR [Concomitant]
     Active Substance: RITONAVIR
     Indication: COVID-19
     Dates: start: 202203
  11. NIRMATRELVIR [Concomitant]
     Active Substance: NIRMATRELVIR
     Indication: COVID-19
     Dates: start: 202203
  12. METHYLPREDNISOLONE [Suspect]
     Active Substance: METHYLPREDNISOLONE
     Indication: Still^s disease
     Dosage: HIGH-DOSE GLUCOCORTICOIDS FOR 3 CONSECUTIVE DAYS
     Dates: start: 2022, end: 2022
  13. ANAKINRA [Suspect]
     Active Substance: ANAKINRA
     Indication: Still^s disease
     Dosage: RE-STARTED
     Route: 042
     Dates: start: 2022, end: 2022
  14. ANAKINRA [Suspect]
     Active Substance: ANAKINRA
     Indication: Haemophagocytic lymphohistiocytosis
     Route: 042
     Dates: start: 2022, end: 2022
  15. BARICITINIB [Suspect]
     Active Substance: BARICITINIB
     Indication: Still^s disease
     Dosage: DOSE INCREASED
     Route: 048
     Dates: start: 202202, end: 202206
  16. CANAKINUMAB [Suspect]
     Active Substance: CANAKINUMAB
     Indication: Still^s disease
     Route: 058
     Dates: start: 2022
  17. CYCLOSPORINE [Suspect]
     Active Substance: CYCLOSPORINE
     Indication: Still^s disease
     Route: 042
     Dates: start: 2022
  18. METHYLPREDNISOLONE [Suspect]
     Active Substance: METHYLPREDNISOLONE
     Indication: Haemophagocytic lymphohistiocytosis
     Route: 042
     Dates: start: 202202, end: 2022
  19. METHYLPREDNISOLONE [Suspect]
     Active Substance: METHYLPREDNISOLONE
     Indication: Haemophagocytic lymphohistiocytosis
     Route: 042
     Dates: start: 2022

REACTIONS (8)
  - Varicella zoster virus infection [Unknown]
  - Oesophageal candidiasis [Recovered/Resolved]
  - Cytomegalovirus infection reactivation [Unknown]
  - Infection reactivation [Unknown]
  - Pseudomonal sepsis [Unknown]
  - Pneumocystis jirovecii pneumonia [Unknown]
  - Spinal fracture [Unknown]
  - Osteoporosis [Unknown]

NARRATIVE: CASE EVENT DATE: 20220101
